FAERS Safety Report 12656527 (Version 1)
Quarter: 2016Q3

REPORT INFORMATION
  Report Type: Report from Study
  Country: BR (occurrence: BR)
  Receive Date: 20160816
  Receipt Date: 20160816
  Transmission Date: 20161109
  Serious: Yes (Other)
  Sender: FDA-Public Use
  Company Number: PHHY2016BR111047

PATIENT
  Age: 96 Year
  Sex: Female
  Weight: 75 kg

DRUGS (1)
  1. EXELON PATCH [Suspect]
     Active Substance: RIVASTIGMINE
     Indication: DEMENTIA ALZHEIMER^S TYPE
     Dosage: 9.5 MG (PATCH 10 CM), QD
     Route: 062

REACTIONS (6)
  - Memory impairment [Unknown]
  - Femur fracture [Unknown]
  - Drug ineffective [Unknown]
  - Emotional disorder [Unknown]
  - Disorientation [Unknown]
  - Confusional state [Unknown]

NARRATIVE: CASE EVENT DATE: 20160720
